FAERS Safety Report 6069635-7 (Version None)
Quarter: 2009Q1

REPORT INFORMATION
  Report Type: 
  Country: None (occurrence: None)
  Receive Date: 20090209
  Receipt Date: 20090129
  Transmission Date: 20090719
  Serious: Yes (Other)
  Sender: FDA-Public Use
  Company Number: SE-BRISTOL-MYERS SQUIBB COMPANY-14478838

PATIENT
  Age: 67 Year
  Sex: Female

DRUGS (7)
  1. ORENCIA [Suspect]
     Indication: RHEUMATOID ARTHRITIS
     Route: 042
     Dates: start: 20080115
  2. ENALAPRIL MALEATE [Concomitant]
  3. FOSAMAX [Concomitant]
  4. METHOTREXATE [Concomitant]
  5. FOLACIN [Concomitant]
  6. ACETAMINOPHEN [Concomitant]
  7. IDEOS [Concomitant]
     Dosage: CHEWABLE TABLET
     Route: 048

REACTIONS (2)
  - GOITRE [None]
  - HYPERTHYROIDISM [None]
